FAERS Safety Report 6104556-2 (Version None)
Quarter: 2009Q1

REPORT INFORMATION
  Report Type: 
  Country: None (occurrence: None)
  Receive Date: 20090305
  Receipt Date: 20090226
  Transmission Date: 20090719
  Serious: Yes (Hospitalization)
  Sender: FDA-Public Use
  Company Number: KR-GENENTECH-276362

PATIENT
  Sex: Female

DRUGS (10)
  1. BEVACIZUMAB [Suspect]
     Indication: BREAST CANCER
     Dosage: 720 MG, QD
     Route: 042
     Dates: start: 20080523
  2. FLUOROURACIL [Suspect]
     Indication: BREAST CANCER
     Dosage: 740 MG, QD
     Route: 042
     Dates: start: 20080523
  3. CYCLOPHOSPHAMIDE [Suspect]
     Indication: BREAST CANCER
     Dosage: 740 MG, QD
     Route: 042
     Dates: start: 20080523
  4. DOXORUBICIN HCL [Suspect]
     Indication: BREAST CANCER
     Dosage: 74 MG, QD
     Route: 042
     Dates: start: 20080523
  5. CHLORHEXIDINE GLUCONATE [Concomitant]
     Indication: DRUG USE FOR UNKNOWN INDICATION
     Dosage: UNK
     Dates: start: 20080821, end: 20080923
  6. MEPERIDINE HCL [Concomitant]
     Indication: DRUG USE FOR UNKNOWN INDICATION
     Dosage: UNK
     Dates: start: 20080921, end: 20080921
  7. MULTI-VITAMIN [Concomitant]
     Indication: DRUG USE FOR UNKNOWN INDICATION
     Dosage: UNK
     Dates: start: 20080921, end: 20080924
  8. DEXTROSE [Concomitant]
     Indication: DRUG USE FOR UNKNOWN INDICATION
     Dosage: UNK
     Dates: start: 20080719, end: 20080923
  9. PHAZYME [Concomitant]
     Indication: DRUG USE FOR UNKNOWN INDICATION
     Dosage: UNK
  10. PANCREATIN [Concomitant]
     Indication: DRUG USE FOR UNKNOWN INDICATION

REACTIONS (2)
  - NEUTROPENIC INFECTION [None]
  - PERIORBITAL CELLULITIS [None]
